FAERS Safety Report 8871165 (Version 1)
Quarter: 2012Q4

REPORT INFORMATION
  Report Type: 
  Country: US (occurrence: US)
  Receive Date: 20121026
  Receipt Date: 20121026
  Transmission Date: 20130627
  Serious: Yes (Hospitalization)
  Sender: FDA-Public Use
  Company Number: US-AMGEN-USASP2012046390

PATIENT
  Age: 57 Year
  Sex: Female

DRUGS (3)
  1. ENBREL [Suspect]
     Indication: RHEUMATOID ARTHRITIS
     Dosage: 50 mg, qwk
     Dates: start: 20081126, end: 2010
  2. ENBREL [Suspect]
     Indication: CROHN^S DISEASE
  3. REMICAIDE [Concomitant]
     Dosage: UNK

REACTIONS (2)
  - Lung abscess [Recovered/Resolved]
  - Skin infection [Recovered/Resolved]
